FAERS Safety Report 7417683-4 (Version None)
Quarter: 2011Q2

REPORT INFORMATION
  Report Type: 
  Country: None (occurrence: None)
  Receive Date: 20110415
  Receipt Date: 20110331
  Transmission Date: 20111010
  Serious: Yes (Hospitalization, Other)
  Sender: FDA-Public Use
  Company Number: JP-BAYER-200911169BYL

PATIENT
  Age: 78 Year
  Sex: Male
  Weight: 50 kg

DRUGS (8)
  1. NEXAVAR [Suspect]
     Indication: RENAL CELL CARCINOMA STAGE IV
     Dosage: 800 MG (DAILY DOSE)
     Route: 048
     Dates: start: 20090119, end: 20090129
  2. NEXAVAR [Suspect]
     Dosage: 400 MG (DAILY DOSE)
     Route: 048
     Dates: start: 20090130, end: 20090224
  3. MUCODYNE [Concomitant]
     Dosage: 2 DF (DAILY DOSE), , ORAL
     Route: 048
     Dates: start: 20090602, end: 20091102
  4. NEXAVAR [Suspect]
     Dosage: 200 MG (DAILY DOSE)
     Route: 048
     Dates: start: 20091102, end: 20100202
  5. MUCODYNE [Concomitant]
     Dosage: 2 DF (DAILY DOSE), , ORAL
     Route: 048
     Dates: start: 20091102, end: 20100202
  6. NEXAVAR [Suspect]
     Dosage: 400 MG (DAILY DOSE)
     Route: 048
     Dates: end: 20090414
  7. MUCODYNE [Concomitant]
     Indication: HEPATIC FUNCTION ABNORMAL
     Dosage: 2 DF (DAILY DOSE), , ORAL
     Route: 048
     Dates: start: 20090415, end: 20090602
  8. OIF [Concomitant]
     Dosage: 500 MIU, TIW
     Route: 058
     Dates: start: 20090425, end: 20091027

REACTIONS (6)
  - BLOOD AMYLASE INCREASED [None]
  - PALMAR-PLANTAR ERYTHRODYSAESTHESIA SYNDROME [None]
  - HYPERTENSION [None]
  - GINGIVAL BLEEDING [None]
  - LIVER FUNCTION TEST ABNORMAL [None]
  - HEPATIC FUNCTION ABNORMAL [None]
